FAERS Safety Report 8003828-4 (Version None)
Quarter: 2011Q4

REPORT INFORMATION
  Report Type: 
  Country: None (occurrence: None)
  Receive Date: 20111222
  Receipt Date: 20111219
  Transmission Date: 20120403
  Serious: Yes (Other)
  Sender: FDA-Public Use
  Company Number: TW-ABBOTT-11P-153-0884894-00

PATIENT
  Sex: Female
  Weight: 65 kg

DRUGS (3)
  1. PERINDOPRIL ERBUMINE [Suspect]
     Indication: HYPERTENSION
     Route: 048
     Dates: start: 20111201, end: 20111201
  2. JANUVIA [Concomitant]
     Indication: PRODUCT USED FOR UNKNOWN INDICATION
     Dates: start: 20111201, end: 20111201
  3. ASPIRIN [Concomitant]
     Indication: PRODUCT USED FOR UNKNOWN INDICATION
     Dates: start: 20111123

REACTIONS (5)
  - SWOLLEN TONGUE [None]
  - DYSPNOEA [None]
  - PHARYNGEAL OEDEMA [None]
  - DYSPHAGIA [None]
  - LIP SWELLING [None]
